FAERS Safety Report 6913348-3 (Version None)
Quarter: 2010Q3

REPORT INFORMATION
  Report Type: 
  Country: None (occurrence: None)
  Receive Date: 20100809
  Receipt Date: 20100730
  Transmission Date: 20110219
  Serious: Yes (Other)
  Sender: FDA-Public Use
  Company Number: PHHO2010GB09427

PATIENT
  Sex: Male
  Weight: 77 kg

DRUGS (1)
  1. ICL670A ICL+ [Suspect]
     Indication: IRON OVERLOAD
     Dosage: 750 MG
     Route: 048
     Dates: start: 20091019

REACTIONS (2)
  - CELLULITIS [None]
  - SKIN ULCER [None]
